FAERS Safety Report 20682864 (Version 1)
Quarter: 2022Q2

REPORT INFORMATION
  Report Type: Spontaneous
  Country: CA (occurrence: CA)
  Receive Date: 20220407
  Receipt Date: 20220407
  Transmission Date: 20220720
  Serious: Yes (Other)
  Sender: FDA-Public Use
  Company Number: CA-TEVA-2022-CA-2023749

PATIENT
  Age: 32 Year
  Sex: Female
  Weight: 85 kg

DRUGS (1)
  1. ANASTROZOLE [Suspect]
     Active Substance: ANASTROZOLE
     Indication: Chemotherapy
     Dosage: 1 MILLIGRAM DAILY;
     Route: 048

REACTIONS (1)
  - Disease progression [Unknown]
